FAERS Safety Report 9891614 (Version 2)
Quarter: 2014Q2

REPORT INFORMATION
  Report Type: Report from Study
  Country: US (occurrence: US)
  Receive Date: 20140212
  Receipt Date: 20140619
  Transmission Date: 20141212
  Serious: Yes (Other)
  Sender: FDA-Public Use
  Company Number: US-PFIZER INC-2014033504

PATIENT
  Age: 65 Year
  Sex: Male

DRUGS (8)
  1. FLUOROURACIL [Suspect]
     Indication: COLON CANCER
     Dosage: INFUSION, LAST DOSE PRIOR TO SAE: 04SEP2013; 3200 MG/M2, 1X/DAY
     Route: 042
     Dates: start: 20130612, end: 20130918
  2. FLUOROURACIL [Suspect]
     Dosage: UNK
     Route: 040
  3. OXALIPLATIN [Suspect]
     Indication: COLON CANCER
     Dosage: LAST DOSE PRIOR TO SAE: 04SEP2013; 85 MG/M2, 1X/DAY
     Route: 042
     Dates: start: 20130612, end: 20130918
  4. IRINOTECAN HCL [Suspect]
     Indication: COLON CANCER
     Dosage: LAST DOSE PRIOR TO SAE: 04SEP2013; 165 MG/M2, 1X/DAY
     Route: 042
     Dates: start: 20130612, end: 20130918
  5. BEVACIZUMAB [Suspect]
     Indication: COLON CANCER
     Dosage: LAST DOSE PRIOR TO SAE: 04SEP2013; 433 MG, 1X/DAY
     Route: 042
     Dates: start: 20130612, end: 20130918
  6. CALCIUM FOLINATE [Suspect]
     Indication: COLON CANCER
     Dosage: LAST DOSE PRIOR TO SAE: 04SEP2013; 100 MG/M2, 1X/DAY
     Route: 042
     Dates: start: 20130724, end: 20130918
  7. CARVEDILOL [Concomitant]
     Indication: HYPERTENSION
     Dosage: 12.5 MG, UNK
     Dates: start: 201105
  8. LISINOPRIL [Concomitant]
     Indication: HYPERTENSION
     Dosage: 20 MG, UNK
     Dates: start: 201105

REACTIONS (1)
  - Hypertension [Recovered/Resolved]
